FAERS Safety Report 17229141 (Version 1)
Quarter: 2020Q1

REPORT INFORMATION
  Report Type: Spontaneous
  Country: JP (occurrence: JP)
  Receive Date: 20200103
  Receipt Date: 20200103
  Transmission Date: 20200409
  Serious: Yes (Other)
  Sender: FDA-Public Use
  Company Number: NVSC2020JP000441

PATIENT

DRUGS (2)
  1. METHYLPREDNISOLONE. [Suspect]
     Active Substance: METHYLPREDNISOLONE
     Dosage: 1.0 MG/KG, QD
     Route: 065
  2. METHYLPREDNISOLONE. [Suspect]
     Active Substance: METHYLPREDNISOLONE
     Indication: IDIOPATHIC PULMONARY FIBROSIS
     Dosage: 1000 MG, QD
     Route: 042

REACTIONS (2)
  - Infectious pleural effusion [Unknown]
  - Bronchopleural fistula [Unknown]
